FAERS Safety Report 9276266 (Version 1)
Quarter: 2012Q4

REPORT INFORMATION
  Report Type: Spontaneous
  Country: GB (occurrence: None)
  Receive Date: 20121109
  Receipt Date: 20121109
  Transmission Date: 20130627
  Serious: Yes (Other)
  Sender: FDA-Public Use
  Company Number: 2012S1000086

PATIENT
  Age: 66 Year
  Sex: Male
  Weight: 90 kg

DRUGS (11)
  1. CUBICIN (DAPTOMYCIN) [Suspect]
     Indication: ARTHROPATHY
     Route: 042
     Dates: start: 20121010, end: 20120113
  2. LEVOFLOXACIN (LEVOFLOXACIN) [Suspect]
  3. AMLODIPINE [Concomitant]
  4. CODEINE [Concomitant]
  5. ENOXAPARIN [Concomitant]
  6. LISINOPRIL [Concomitant]
  7. PARACETAMOL [Concomitant]
  8. PREDNISOLONE [Concomitant]
  9. OMEPRAZOLE [Concomitant]
  10. ALL OTHER THERAPEUTIC PRODUCTS [Concomitant]
  11. DOXYCYCLINE [Concomitant]

REACTIONS (1)
  - Pneumonia [None]
